FAERS Safety Report 4795263-7 (Version None)
Quarter: 2005Q4

REPORT INFORMATION
  Report Type: 
  Country: None (occurrence: None)
  Receive Date: 20051012
  Receipt Date: 20051003
  Transmission Date: 20060501
  Serious: Yes (Death)
  Sender: FDA-Public Use
  Company Number: 200517062US

PATIENT
  Sex: Male

DRUGS (5)
  1. LOVENOX [Suspect]
     Indication: THROMBOSIS
     Dosage: DOSE: 150-100
     Route: 058
     Dates: start: 20040801, end: 20050901
  2. THEO-DUR [Concomitant]
     Dosage: DOSE: UNKNOWN
  3. COUMADIN [Concomitant]
     Dosage: DOSE: UNKNOWN
  4. CARDIOVASCULAR SYSTEM DRUGS [Concomitant]
     Dosage: DOSE: UNKNOWN
  5. ASPIRIN [Concomitant]
     Dosage: DOSE: UNKNOWN

REACTIONS (1)
  - LUNG NEOPLASM MALIGNANT [None]
